FAERS Safety Report 5477949-4 (Version None)
Quarter: 2007Q4

REPORT INFORMATION
  Report Type: 
  Country: None (occurrence: None)
  Receive Date: 20071005
  Receipt Date: 20070925
  Transmission Date: 20080405
  Serious: Yes (Hospitalization)
  Sender: FDA-Public Use
  Company Number: PT-JNJFOC-20070804119

PATIENT
  Age: 63 Year
  Sex: Male
  Weight: 87 kg

DRUGS (1)
  1. REMICADE [Suspect]
     Indication: PSORIASIS
     Route: 042

REACTIONS (2)
  - PHARYNGITIS [None]
  - PULMONARY TUBERCULOSIS [None]
